FAERS Safety Report 7624265-8 (Version None)
Quarter: 2011Q3

REPORT INFORMATION
  Report Type: 
  Country: None (occurrence: None)
  Receive Date: 20110720
  Receipt Date: 20100116
  Transmission Date: 20111222
  Serious: Yes (Death, Other)
  Sender: FDA-Public Use
  Company Number: US-BAYER-201011405NA

PATIENT
  Age: 64 Year
  Sex: Male
  Weight: 93.333 kg

DRUGS (28)
  1. LISINOPRIL [Concomitant]
     Route: 048
  2. ADENOSINE [Concomitant]
     Dosage: UNK
     Dates: start: 19990301, end: 19990301
  3. VECURONIUM BROMIDE [Concomitant]
     Dosage: UNK
     Dates: start: 19990301, end: 19990301
  4. NITROGLYCERIN [Concomitant]
     Dosage: UNK
     Dates: start: 19990122, end: 19990123
  5. DILTIAZEM [Concomitant]
     Dosage: UNK
     Dates: start: 19990301, end: 19990301
  6. PAPAVERINE [Concomitant]
     Dosage: UNK
     Dates: start: 19990301, end: 19990301
  7. TRASYLOL [Suspect]
     Indication: CORONARY ARTERY BYPASS
     Dosage: UNK
     Route: 042
     Dates: start: 19990301
  8. NITROGLYCERIN [Concomitant]
     Dosage: UNK
     Dates: start: 19990301, end: 19990301
  9. SIMVASTATIN [Concomitant]
     Route: 048
  10. PROTAMINE SULFATE [Concomitant]
     Dosage: UNK
     Dates: start: 19990301, end: 19990301
  11. ACETYLSALICYLIC ACID SRT [Concomitant]
     Route: 048
  12. HEPARIN [Concomitant]
     Dosage: UNK
     Route: 042
     Dates: start: 19990122, end: 19990123
  13. CEFAZOLIN [Concomitant]
     Dosage: UNK
     Dates: start: 19990301, end: 19990301
  14. AMICAR [Concomitant]
     Dosage: UNK
     Dates: start: 19990301, end: 19990301
  15. ISORDIL [Concomitant]
     Route: 048
  16. LOPRESSOR [Concomitant]
     Route: 048
  17. HYDROCHLOROTHIAZIDE [Concomitant]
     Route: 048
  18. CEFUROXIME [Concomitant]
     Dosage: UNK
     Route: 042
     Dates: start: 19990301, end: 19990301
  19. HEPARIN [Concomitant]
     Dosage: UNK
     Dates: start: 19990301, end: 19990301
  20. TRASYLOL [Suspect]
     Indication: CORONARY REVASCULARISATION
     Dosage: UNK
     Route: 042
     Dates: start: 19980301
  21. TRASYLOL [Suspect]
     Dosage: UNK
     Route: 042
     Dates: start: 19950301
  22. TERAZOSIN HCL [Concomitant]
     Route: 048
  23. VERAPAMIL [Concomitant]
     Dosage: UNK
     Dates: start: 19990301, end: 19990301
  24. EPINEPHRINE [Concomitant]
     Dosage: UNK
     Dates: start: 19990301, end: 19990301
  25. LASIX [Concomitant]
     Route: 048
  26. THROMBIN LOCAL SOLUTION [Concomitant]
     Dosage: UNK
     Dates: start: 19990301, end: 19990301
  27. MIDAZOLAM HCL [Concomitant]
     Dosage: UNK
     Dates: start: 19990301, end: 19990301
  28. FENTANYL-100 [Concomitant]
     Dosage: UNK
     Dates: start: 19990301, end: 19990301

REACTIONS (14)
  - CEREBROVASCULAR ACCIDENT [None]
  - RENAL FAILURE [None]
  - ORGAN FAILURE [None]
  - PAIN [None]
  - ANHEDONIA [None]
  - FEAR [None]
  - INJURY [None]
  - UNEVALUABLE EVENT [None]
  - RENAL IMPAIRMENT [None]
  - DEATH [None]
  - DEPRESSION [None]
  - CARDIAC DISORDER [None]
  - ANXIETY [None]
  - RENAL INJURY [None]
